FAERS Safety Report 21058843 (Version 1)
Quarter: 2022Q3

REPORT INFORMATION
  Report Type: Spontaneous
  Country: US (occurrence: US)
  Receive Date: 20220708
  Receipt Date: 20220708
  Transmission Date: 20221027
  Serious: No
  Sender: FDA-Public Use
  Company Number: US-JAZZ-2022-US-000156

PATIENT
  Sex: Female

DRUGS (1)
  1. ZEPZELCA [Suspect]
     Active Substance: LURBINECTEDIN
     Indication: Small cell lung cancer
     Dosage: 6.3 MILLIGRAM, FIRST DOSE
     Route: 042
     Dates: start: 20211222

REACTIONS (3)
  - Vein discolouration [Not Recovered/Not Resolved]
  - Phlebitis [Not Recovered/Not Resolved]
  - Vein disorder [Not Recovered/Not Resolved]
